FAERS Safety Report 8393608-2 (Version None)
Quarter: 2012Q2

REPORT INFORMATION
  Report Type: 
  Country: None (occurrence: None)
  Receive Date: 20120530
  Receipt Date: 20120521
  Transmission Date: 20120825
  Serious: Yes (Hospitalization, Other)
  Sender: FDA-Public Use
  Company Number: US-BIOGENIDEC-2010BI037469

PATIENT
  Age: 37 Year
  Sex: Female

DRUGS (10)
  1. TYSABRI [Suspect]
     Indication: MULTIPLE SCLEROSIS
     Route: 042
     Dates: start: 20090806, end: 20101026
  2. TYSABRI [Suspect]
     Route: 042
     Dates: start: 20110107, end: 20110901
  3. TYSABRI [Suspect]
     Route: 042
     Dates: start: 20110101
  4. GABAPENTIN [Concomitant]
     Indication: PARAESTHESIA
     Dates: start: 20060501
  5. CITALOPRAM HYDROBROMIDE [Concomitant]
     Dates: start: 20100801
  6. DILANTIN [Concomitant]
     Indication: EPILEPSY
     Dates: start: 20061201
  7. PERCOCET [Concomitant]
     Indication: PARAESTHESIA
     Route: 048
     Dates: start: 20060801
  8. VALIUM [Concomitant]
     Indication: RESTLESS LEGS SYNDROME
     Route: 048
     Dates: start: 20060301
  9. PERCOCET [Concomitant]
     Indication: PAIN
     Route: 048
     Dates: start: 20060801
  10. LEXAPRO [Concomitant]
     Indication: DEPRESSION
     Dates: start: 20071101

REACTIONS (1)
  - THYROID CANCER [None]
